FAERS Safety Report 6035414-X (Version None)
Quarter: 2009Q1

REPORT INFORMATION
  Report Type: 
  Country: None (occurrence: None)
  Receive Date: 20090112
  Receipt Date: 20090112
  Transmission Date: 20090719
  Serious: Yes (Other)
  Sender: FDA-Public Use
  Company Number: None

PATIENT
  Age: 54 Year
  Sex: Female
  Weight: 113.3993 kg

DRUGS (3)
  1. ZOCOR [Suspect]
     Indication: CORONARY ARTERY DISEASE
     Dosage: 10MG 1 DOSE PER DAY PO
     Route: 048
     Dates: start: 20071201, end: 20081231
  2. ZOCOR [Suspect]
     Indication: PROPHYLAXIS
     Dosage: 10MG 1 DOSE PER DAY PO
     Route: 048
     Dates: start: 20071201, end: 20081231
  3. LOVASTATIN [Suspect]
     Indication: BLOOD CHOLESTEROL
     Dosage: 20MG 1 DOSE PER DAY PO
     Route: 048
     Dates: start: 20061201, end: 20071201

REACTIONS (17)
  - ANXIETY [None]
  - ARTHRALGIA [None]
  - BONE DISORDER [None]
  - EXOSTOSIS [None]
  - GAIT DISTURBANCE [None]
  - GENERAL PHYSICAL HEALTH DETERIORATION [None]
  - IMPAIRED WORK ABILITY [None]
  - INFLAMMATION [None]
  - MEMORY IMPAIRMENT [None]
  - MUSCLE SPASMS [None]
  - MUSCULAR WEAKNESS [None]
  - PAIN IN EXTREMITY [None]
  - PARAESTHESIA [None]
  - TENDON CALCIFICATION [None]
  - TENDON PAIN [None]
  - TENDONITIS [None]
  - WEIGHT INCREASED [None]
